FAERS Safety Report 7517021-2 (Version None)
Quarter: 2011Q2

REPORT INFORMATION
  Report Type: 
  Country: None (occurrence: None)
  Receive Date: 20110526
  Receipt Date: 20110526
  Transmission Date: 20111010
  Serious: Yes (Life-Threatening)
  Sender: FDA-Public Use
  Company Number: None

PATIENT
  Sex: Female
  Weight: 104 kg

DRUGS (1)
  1. DEFINITY [Suspect]
     Indication: ENDOCARDIAL DISEASE
     Dosage: 3ML 1 SLOW IV PUSH
     Route: 042
     Dates: start: 20110516

REACTIONS (2)
  - RESPIRATORY ARREST [None]
  - CARDIAC ARREST [None]
